FAERS Safety Report 10265903 (Version 3)
Quarter: 2015Q1

REPORT INFORMATION
  Report Type: Spontaneous
  Country: JP (occurrence: JP)
  Receive Date: 20140627
  Receipt Date: 20150115
  Transmission Date: 20150720
  Serious: Yes (Hospitalization)
  Sender: FDA-Public Use
  Company Number: JP-PFIZER INC-2014174915

PATIENT
  Age: 48 Year
  Sex: Male

DRUGS (6)
  1. FUROSEMIDE. [Concomitant]
     Active Substance: FUROSEMIDE
     Indication: FACE OEDEMA
     Dosage: 20 MG, UNK
     Route: 048
  2. ALDACTONE [Concomitant]
     Active Substance: SPIRONOLACTONE
     Indication: OEDEMA PERIPHERAL
  3. FUROSEMIDE. [Concomitant]
     Active Substance: FUROSEMIDE
     Indication: OEDEMA PERIPHERAL
  4. ALDACTONE [Concomitant]
     Active Substance: SPIRONOLACTONE
     Indication: FACE OEDEMA
     Dosage: 25 MG, UNK
     Route: 048
  5. SITAGLIPTIN [Suspect]
     Active Substance: SITAGLIPTIN
     Dosage: 2650 MG (50 MG TABLET X 53)
     Route: 048
  6. FUROSEMIDE. [Concomitant]
     Active Substance: FUROSEMIDE
     Indication: OEDEMA PERIPHERAL

REACTIONS (9)
  - Hyponatraemia [Unknown]
  - Ketosis [Unknown]
  - Vomiting [Unknown]
  - Hypochloraemia [Unknown]
  - Hypokalaemia [Unknown]
  - Altered state of consciousness [Recovering/Resolving]
  - Overdose [Unknown]
  - Blood pressure decreased [Unknown]
  - Metabolic alkalosis [Unknown]
